FAERS Safety Report 6556434-2 (Version None)
Quarter: 2010Q1

REPORT INFORMATION
  Report Type: 
  Country: None (occurrence: None)
  Receive Date: 20100128
  Receipt Date: 20100107
  Transmission Date: 20100710
  Serious: Yes (Death, Hospitalization)
  Sender: FDA-Public Use
  Company Number: B0628027A

PATIENT
  Age: 73 Year
  Sex: Male

DRUGS (3)
  1. HYCAMTIN [Suspect]
     Indication: SMALL CELL LUNG CANCER STAGE UNSPECIFIED
     Dosage: 4.5MG PER DAY
     Route: 048
     Dates: start: 20091231
  2. ETOPOSIDE [Concomitant]
     Route: 065
  3. CARBOPLATIN [Concomitant]
     Route: 065

REACTIONS (1)
  - INTESTINAL PERFORATION [None]
